FAERS Safety Report 20570731 (Version 1)
Quarter: 2022Q1

REPORT INFORMATION
  Report Type: Spontaneous
  Country: NL (occurrence: NL)
  Receive Date: 20220309
  Receipt Date: 20220309
  Transmission Date: 20220423
  Serious: Yes (Other)
  Sender: FDA-Public Use
  Company Number: None

PATIENT
  Age: 74 Year
  Sex: Male
  Weight: 74 kg

DRUGS (4)
  1. PANTOPRAZOLE SODIUM [Suspect]
     Active Substance: PANTOPRAZOLE SODIUM
     Indication: Prophylaxis
     Dosage: 20 MILLIGRAM DAILY; PANTOPRAZOL TABLET MSR 20MG / BRAND NAME NOT SPECIFIED
     Route: 065
     Dates: start: 202012, end: 20220210
  2. LIPITOR [Concomitant]
     Active Substance: ATORVASTATIN CALCIUM
     Dosage: 20 MG, ATORVASTATIN TABLET 20MG / LIPITOR TABLET COATED 20MG, THERAPY START AND END DATE: ASKU
  3. METOPROLOL (SUCCINATE) [Concomitant]
     Dosage: 50 MG, THERAPY START AND END DATE: ASKU, METOPROLOL TABLET MGA 50MG (SUCCINATE) / BRAND NAME NOT SPE
  4. CARBASPIRIN [Concomitant]
     Active Substance: CARBASPIRIN
     Dosage: 80 MG, TABLET, CARBASALATE CALCIUM POWDER 100MG / ASCAL CARDIO SACHET 100MG, THERAPY START AND END D

REACTIONS (1)
  - Erectile dysfunction [Recovered/Resolved]

NARRATIVE: CASE EVENT DATE: 20200101
